FAERS Safety Report 6277982-9 (Version None)
Quarter: 2009Q3

REPORT INFORMATION
  Report Type: 
  Country: None (occurrence: None)
  Receive Date: 20090722
  Receipt Date: 20090720
  Transmission Date: 20100115
  Serious: Yes (Death, Hospitalization, Disabling, Other)
  Sender: FDA-Public Use
  Company Number: US-BRISTOL-MYERS SQUIBB COMPANY-14512818

PATIENT
  Age: 66 Year
  Sex: Female

DRUGS (4)
  1. IXEMPRA KIT [Suspect]
     Indication: BREAST CANCER
     Route: 040
     Dates: start: 20090209, end: 20090209
  2. RADIATION THERAPY [Suspect]
  3. BENADRYL [Concomitant]
     Route: 048
     Dates: start: 20090209
  4. ZOFRAN [Concomitant]
     Route: 040
     Dates: start: 20090209

REACTIONS (3)
  - MALIGNANT NEOPLASM PROGRESSION [None]
  - MUCOSAL INFECTION [None]
  - RECALL PHENOMENON [None]
